FAERS Safety Report 7041006-6 (Version None)
Quarter: 2010Q4

REPORT INFORMATION
  Report Type: 
  Country: None (occurrence: None)
  Receive Date: 20101013
  Receipt Date: 20100930
  Transmission Date: 20110411
  Serious: Yes (Hospitalization, Other)
  Sender: FDA-Public Use
  Company Number: PHHY2010US65443

PATIENT
  Sex: Female

DRUGS (1)
  1. VALTURNA [Suspect]
     Dosage: 150 MG, QD

REACTIONS (4)
  - CONTUSION [None]
  - MALAISE [None]
  - RENAL FAILURE [None]
  - SKIN HAEMORRHAGE [None]
